FAERS Safety Report 15143904 (Version 2)
Quarter: 2019Q2

REPORT INFORMATION
  Report Type: Report from Study
  Country: DE (occurrence: DE)
  Receive Date: 20180713
  Receipt Date: 20190404
  Transmission Date: 20190711
  Serious: Yes (Hospitalization)
  Sender: FDA-Public Use
  Company Number: DE-MYLANLABS-2018M1050169

PATIENT
  Age: 75 Year
  Sex: Female

DRUGS (2)
  1. METHOTREXATE. [Suspect]
     Active Substance: METHOTREXATE
     Indication: RHEUMATOID ARTHRITIS
     Dosage: 15 MG, UNK
     Route: 065
     Dates: start: 201704
  2. TOCILIZUMAB. [Suspect]
     Active Substance: TOCILIZUMAB
     Indication: RHEUMATOID ARTHRITIS
     Dosage: 720 MG, Q28D
     Route: 065

REACTIONS (1)
  - Bladder adenocarcinoma stage unspecified [Not Recovered/Not Resolved]

NARRATIVE: CASE EVENT DATE: 20170427
